FAERS Safety Report 21165343 (Version 1)
Quarter: 2022Q3

REPORT INFORMATION
  Report Type: Spontaneous
  Country: NO (occurrence: None)
  Receive Date: 20220803
  Receipt Date: 20220803
  Transmission Date: 20221026
  Serious: Yes (Other)
  Sender: FDA-Public Use
  Company Number: NO-ROCHE-3151949

PATIENT
  Sex: Male

DRUGS (8)
  1. RITUXIMAB [Suspect]
     Active Substance: RITUXIMAB
     Indication: Diffuse large B-cell lymphoma
     Dosage: 1ST LINE SYSTEMIC TREATMENT, R-CHOP, MIXED RESPONSE
     Route: 065
     Dates: start: 20220124, end: 20220307
  2. RITUXIMAB [Suspect]
     Active Substance: RITUXIMAB
     Dosage: 2ND LINE SYSTEMIC TREATMENT, INCREASING PAIN, PROGRESSION OF ALL KNOWN TUMORS IN AND OUTSIDE LIVER,
     Route: 065
     Dates: start: 20220328, end: 20220419
  3. POLIVY [Suspect]
     Active Substance: POLATUZUMAB VEDOTIN-PIIQ
     Indication: Diffuse large B-cell lymphoma
     Dosage: 3RD LINE SYSTEMIC TREATMENT, POLA-BR, INCREASED RETROPERITONEAL TUMOR NOW 17 X 15 CM AND INCREASE IN
     Route: 065
     Dates: start: 20220422, end: 20220705
  4. CYCLOPHOSPHAMIDE\DOXORUBICIN\PREDNISONE\VINCRISTINE [Suspect]
     Active Substance: CYCLOPHOSPHAMIDE\DOXORUBICIN\PREDNISONE\VINCRISTINE
     Indication: Diffuse large B-cell lymphoma
     Dosage: 1ST LINE SYSTEMIC TREATMENT, R-CHOP, MIXED RESPONSE
     Route: 065
     Dates: start: 20220124, end: 20220307
  5. IFOSFAMIDE [Suspect]
     Active Substance: IFOSFAMIDE
     Indication: Diffuse large B-cell lymphoma
     Dosage: 2ND LINE SYSTEMIC TREATMENT, INCREASING PAIN, PROGRESSION OF ALL KNOWN TUMORS IN AND OUTSIDE LIVER,
     Route: 065
     Dates: start: 20220328, end: 20220419
  6. ETOPOSIDE [Suspect]
     Active Substance: ETOPOSIDE
     Indication: Diffuse large B-cell lymphoma
     Dosage: 2ND LINE SYSTEMIC TREATMENT, INCREASING PAIN, PROGRESSION OF ALL KNOWN TUMORS IN AND OUTSIDE LIVER,
     Route: 065
     Dates: start: 20220328, end: 20220419
  7. METHOTREXATE [Suspect]
     Active Substance: METHOTREXATE
     Indication: Diffuse large B-cell lymphoma
     Dosage: 2ND LINE SYSTEMIC TREATMENT, INCREASING PAIN, PROGRESSION OF ALL KNOWN TUMORS IN AND OUTSIDE LIVER,
     Route: 065
     Dates: start: 20220328, end: 20220419
  8. BENDAMUSTINE [Suspect]
     Active Substance: BENDAMUSTINE
     Indication: Diffuse large B-cell lymphoma
     Dosage: 3RD LINE SYSTEMIC TREATMENT, POLA-BR, INCREASED RETROPERITONEAL TUMOR NOW 17 X 15 CM AND INCREASE IN
     Route: 065
     Dates: start: 20220422, end: 20220705

REACTIONS (1)
  - Disease progression [Unknown]
